FAERS Safety Report 6312198-9 (Version None)
Quarter: 2009Q3

REPORT INFORMATION
  Report Type: 
  Country: None (occurrence: None)
  Receive Date: 20090817
  Receipt Date: 20090805
  Transmission Date: 20100115
  Serious: Yes (Hospitalization, Other)
  Sender: FDA-Public Use
  Company Number: CA-PFIZER INC-2009251177

PATIENT
  Age: 59 Year

DRUGS (12)
  1. NEURONTIN [Suspect]
     Indication: BACK PAIN
     Dosage: 800 MG, 4X/DAY
     Route: 048
  2. ATENOLOL [Suspect]
     Dosage: 50 MG, 1X/DAY
  3. MS CONTIN [Suspect]
     Dosage: 60 MG, 3X/DAY
     Route: 048
  4. MS CONTIN [Suspect]
     Dosage: UNK
  5. MS CONTIN [Suspect]
     Dosage: UNK
  6. ISORDIL [Concomitant]
  7. LIPITOR [Concomitant]
     Dosage: 40 MG, 1X/DAY
  8. ACETYLSALICYLIC ACID [Concomitant]
     Dosage: 81 MG, 1X/DAY
  9. ALTACE [Concomitant]
     Dosage: 2.5 MG, 1X/DAY
  10. COLACE [Concomitant]
  11. VIOXX [Concomitant]
  12. NITRO-SPRAY [Concomitant]

REACTIONS (8)
  - ADJUSTMENT DISORDER [None]
  - ANGER [None]
  - ECONOMIC PROBLEM [None]
  - IMPAIRED WORK ABILITY [None]
  - INTENTIONAL OVERDOSE [None]
  - MAJOR DEPRESSION [None]
  - PSYCHIATRIC SYMPTOM [None]
  - SUICIDE ATTEMPT [None]
